FAERS Safety Report 16905822 (Version 7)
Quarter: 2020Q2

REPORT INFORMATION
  Report Type: Spontaneous
  Country: US (occurrence: US)
  Receive Date: 20191010
  Receipt Date: 20200407
  Transmission Date: 20200713
  Serious: Yes (Death, Hospitalization, Other)
  Sender: FDA-Public Use
  Company Number: US-ACTELION-A-NJ2019-195472

PATIENT
  Age: 62 Year
  Sex: Female

DRUGS (1)
  1. OPSUMIT [Suspect]
     Active Substance: MACITENTAN
     Indication: PULMONARY ARTERIAL HYPERTENSION
     Dosage: 10 MG, QD
     Route: 048
     Dates: start: 20190716, end: 20200312

REACTIONS (16)
  - Meniscus injury [Recovered/Resolved with Sequelae]
  - Haemoptysis [Fatal]
  - Influenza [Not Recovered/Not Resolved]
  - Joint swelling [Recovered/Resolved with Sequelae]
  - Tremor [Not Recovered/Not Resolved]
  - Pneumonia [Fatal]
  - Condition aggravated [Recovered/Resolved]
  - Arthralgia [Recovered/Resolved with Sequelae]
  - Hypotension [Recovering/Resolving]
  - Gastrooesophageal reflux disease [Recovered/Resolved]
  - Dyspnoea [Fatal]
  - Vomiting [Fatal]
  - Nausea [Recovered/Resolved]
  - Meniscus removal [Recovered/Resolved with Sequelae]
  - Pulmonary pain [Unknown]
  - Abdominal pain upper [Recovered/Resolved]

NARRATIVE: CASE EVENT DATE: 201910
